FAERS Safety Report 9689404 (Version 1)
Quarter: 2013Q4

REPORT INFORMATION
  Report Type: Spontaneous
  Country: US (occurrence: US)
  Receive Date: 20131114
  Receipt Date: 20131114
  Transmission Date: 20140711
  Serious: No
  Sender: FDA-Public Use
  Company Number: US-TEVA-441959USA

PATIENT
  Sex: Female

DRUGS (1)
  1. PLAN B ONE-STEP [Suspect]
     Dates: start: 20131009

REACTIONS (4)
  - Nausea [Unknown]
  - Menstruation delayed [Unknown]
  - Muscle spasms [Unknown]
  - Fatigue [Unknown]
